FAERS Safety Report 21449873 (Version 2)
Quarter: 2022Q4

REPORT INFORMATION
  Report Type: Spontaneous
  Country: US (occurrence: US)
  Receive Date: 20221013
  Receipt Date: 20221118
  Transmission Date: 20230113
  Serious: No
  Sender: FDA-Public Use
  Company Number: US-TAKEDA-2022TUS070495

PATIENT
  Sex: Male

DRUGS (6)
  1. NINLARO [Suspect]
     Active Substance: IXAZOMIB CITRATE
     Indication: Plasma cell myeloma
     Dosage: 4 MILLIGRAM
     Route: 048
     Dates: start: 20220811
  2. DEXAMETHASONE [Concomitant]
     Active Substance: DEXAMETHASONE
     Dosage: 4 MILLIGRAM
     Route: 065
  3. POMALYST [Concomitant]
     Active Substance: POMALIDOMIDE
     Dosage: 1 MILLIGRAM
     Route: 065
  4. REVLIMID [Concomitant]
     Active Substance: LENALIDOMIDE
     Dosage: 2.5 MILLIGRAM
     Route: 065
  5. REVLIMID [Concomitant]
     Active Substance: LENALIDOMIDE
     Dosage: 5 MILLIGRAM
     Route: 065
  6. REVLIMID [Concomitant]
     Active Substance: LENALIDOMIDE
     Dosage: 15 MILLIGRAM
     Route: 065

REACTIONS (2)
  - Dry skin [Unknown]
  - Pruritus [Recovered/Resolved]
